FAERS Safety Report 14802781 (Version 3)
Quarter: 2018Q3

REPORT INFORMATION
  Report Type: Report from Study
  Country: JP (occurrence: JP)
  Receive Date: 20180424
  Receipt Date: 20180723
  Transmission Date: 20181010
  Serious: Yes (Hospitalization)
  Sender: FDA-Public Use
  Company Number: JP-PFIZER INC-2018157920

PATIENT
  Age: 73 Year
  Sex: Female
  Weight: 36.5 kg

DRUGS (11)
  1. METHOTREXATE. [Concomitant]
     Active Substance: METHOTREXATE
     Dosage: 10 MG, WEEKLY
     Route: 048
     Dates: start: 20170927
  2. FOLIAMIN [Concomitant]
     Active Substance: FOLIC ACID
     Dosage: 5 MG, WEEKLY (WITHIN 30 MINUTES AFTER BREAKFAST ON EVERY WEDNESDAY)
     Route: 048
  3. GLAKAY [Concomitant]
     Active Substance: MENATETRENONE
     Dosage: 15 MG, 3X/DAY (WITHIN 30 MINUTES AFTER BREAKFAST, LUNCH AND EVENING DINNER)
     Route: 048
  4. METHOTREXATE. [Concomitant]
     Active Substance: METHOTREXATE
     Indication: RHEUMATOID ARTHRITIS
     Dosage: 16 MG, WEEKLY
     Route: 048
     Dates: start: 2001, end: 20160113
  5. EDIROL [Concomitant]
     Active Substance: ELDECALCITOL
     Dosage: 0.75 UG, 1X/DAY (WITHIN 30 MINUTES AFTER BREAKFAST)
     Route: 048
  6. FUROSEMIDE. [Concomitant]
     Active Substance: FUROSEMIDE
     Dosage: 10 MG, DAILY
  7. XELJANZ [Suspect]
     Active Substance: TOFACITINIB CITRATE
     Indication: RHEUMATOID ARTHRITIS
     Dosage: 5 MG, 1X/DAY (WITHIN 30 MINUTES AFTER BREAKFAST)
     Route: 048
     Dates: start: 20160113, end: 20170801
  8. MAGMITT [Concomitant]
     Active Substance: MAGNESIUM OXIDE
     Dosage: 500 MG, 3X/DAY (WITHIN 30 MINUTES AFTER BREAKFAST, LUNCH AND EVENING DINNER)
     Route: 048
  9. BAYASPIRIN [Concomitant]
     Active Substance: ASPIRIN
     Dosage: 100 MG, 1X/DAY (WITHIN 30 MINUTES AFTER BREAKFAST)
     Route: 048
     Dates: start: 201408
  10. METHOTREXATE. [Concomitant]
     Active Substance: METHOTREXATE
     Dosage: 14 MG, WEEKLY ((8 MG WITHIN 30 MIN AFTER BREAKFAST AND 6 MG WITHIN 30 MIN AFTER EVENING DINNER)
     Route: 048
     Dates: start: 20160406, end: 20170926
  11. RECALBON [Concomitant]
     Active Substance: MINODRONIC ACID
     Dosage: 50 MG, MONTHLY

REACTIONS (1)
  - Colon cancer [Unknown]

NARRATIVE: CASE EVENT DATE: 201703
